FAERS Safety Report 11369709 (Version 8)
Quarter: 2016Q2

REPORT INFORMATION
  Report Type: Report from Study
  Country: US (occurrence: US)
  Receive Date: 20150812
  Receipt Date: 20160428
  Transmission Date: 20160815
  Serious: Yes (Hospitalization)
  Sender: FDA-Public Use
  Company Number: US-EISAI MEDICAL RESEARCH-EC-2015-009269

PATIENT
  Age: 82 Year
  Sex: Male
  Weight: 87.5 kg

DRUGS (14)
  1. LEVOXYL [Concomitant]
     Active Substance: LEVOTHYROXINE SODIUM
  2. LENVIMA [Suspect]
     Active Substance: LENVATINIB
     Route: 048
     Dates: start: 2015
  3. LENVIMA [Suspect]
     Active Substance: LENVATINIB
     Indication: THYROID CANCER
     Route: 048
     Dates: start: 20150701, end: 201508
  4. LENVIMA [Suspect]
     Active Substance: LENVATINIB
     Route: 048
     Dates: start: 20150812, end: 20151109
  5. PROSTATE CAPSULE [Concomitant]
  6. LUPRON DEPOT-PED [Concomitant]
     Active Substance: LEUPROLIDE ACETATE
  7. LISINOPRIL. [Concomitant]
     Active Substance: LISINOPRIL
  8. AMLODIPINE [Concomitant]
     Active Substance: AMLODIPINE BESYLATE
  9. ADVAIR DISKUS [Concomitant]
     Active Substance: FLUTICASONE PROPIONATE\SALMETEROL XINAFOATE
  10. OMEPRAZOLE. [Concomitant]
     Active Substance: OMEPRAZOLE
  11. NAPROXEN. [Concomitant]
     Active Substance: NAPROXEN
  12. CLONIDINE. [Concomitant]
     Active Substance: CLONIDINE
  13. BICALUTAMIDE. [Concomitant]
     Active Substance: BICALUTAMIDE
  14. MEGESTROL [Concomitant]
     Active Substance: MEGESTROL

REACTIONS (21)
  - Hypertension [Unknown]
  - Pneumonia [Unknown]
  - Aphonia [Not Recovered/Not Resolved]
  - Stomatitis [Recovered/Resolved]
  - Bone pain [Unknown]
  - Dysphonia [Unknown]
  - Musculoskeletal chest pain [Unknown]
  - Oropharyngeal pain [Unknown]
  - Back pain [Unknown]
  - Fatigue [Recovering/Resolving]
  - Decreased appetite [Not Recovered/Not Resolved]
  - Weight decreased [Unknown]
  - Candida infection [Unknown]
  - Medical device site infection [Recovered/Resolved]
  - Musculoskeletal pain [Unknown]
  - Odynophagia [Unknown]
  - Dry mouth [Unknown]
  - Pleurisy [Unknown]
  - Malnutrition [Unknown]
  - Adverse event [Unknown]
  - Chest pain [Unknown]

NARRATIVE: CASE EVENT DATE: 2015
